FAERS Safety Report 6341868-1 (Version None)
Quarter: 2009Q3

REPORT INFORMATION
  Report Type: 
  Country: None (occurrence: None)
  Receive Date: 20090904
  Receipt Date: 20090831
  Transmission Date: 20100115
  Serious: Yes (Death)
  Sender: FDA-Public Use
  Company Number: DE-GENENTECH-286855

PATIENT
  Sex: Male

DRUGS (4)
  1. LUCENTIS [Suspect]
     Indication: MACULAR DEGENERATION
     Dosage: UNK
     Route: 031
     Dates: start: 20080429
  2. LUCENTIS [Suspect]
     Dosage: UNK
     Route: 031
     Dates: start: 20090527
  3. LUCENTIS [Suspect]
     Dosage: UNK
     Dates: start: 20090624
  4. FLUORESCEIN [Concomitant]
     Indication: DRUG USE FOR UNKNOWN INDICATION

REACTIONS (1)
  - FALL [None]
